FAERS Safety Report 25127354 (Version 2)
Quarter: 2025Q2

REPORT INFORMATION
  Report Type: Spontaneous
  Country: NO (occurrence: NO)
  Receive Date: 20250327
  Receipt Date: 20250517
  Transmission Date: 20250717
  Serious: Yes (Other)
  Sender: ACCORD
  Company Number: NO-Accord-475368

PATIENT
  Age: 55 Year
  Sex: Female

DRUGS (3)
  1. ARIPIPRAZOLE [Suspect]
     Active Substance: ARIPIPRAZOLE
     Indication: Bipolar disorder
     Dates: start: 20231002
  2. SEROQUEL [Suspect]
     Active Substance: QUETIAPINE FUMARATE
     Indication: Insomnia
     Dates: start: 20240126, end: 2024
  3. LITHIUM SULFATE [Concomitant]
     Active Substance: LITHIUM SULFATE
     Dates: end: 202407

REACTIONS (3)
  - Blood pressure decreased [Unknown]
  - Syncope [Unknown]
  - Insomnia [Unknown]

NARRATIVE: CASE EVENT DATE: 20240101
